FAERS Safety Report 21681060 (Version 2)
Quarter: 2022Q4

REPORT INFORMATION
  Report Type: Report from Study
  Country: US (occurrence: US)
  Receive Date: 20221205
  Receipt Date: 20221208
  Transmission Date: 20230112
  Serious: No
  Sender: FDA-Public Use
  Company Number: US-SANOFI-01389542

PATIENT
  Age: 32 Year
  Sex: Male

DRUGS (1)
  1. DUPILUMAB [Suspect]
     Active Substance: DUPILUMAB
     Indication: Eosinophilic oesophagitis
     Dosage: 300 MG, QW
     Route: 058
     Dates: start: 20221130

REACTIONS (2)
  - Injection site mass [Not Recovered/Not Resolved]
  - Injection site swelling [Unknown]

NARRATIVE: CASE EVENT DATE: 20221130
